FAERS Safety Report 18968927 (Version 10)
Quarter: 2025Q1

REPORT INFORMATION
  Report Type: Report from Study
  Country: US (occurrence: US)
  Receive Date: 20210304
  Receipt Date: 20250116
  Transmission Date: 20250409
  Serious: Yes (Hospitalization, Other)
  Sender: TAKEDA
  Company Number: US-TAKEDA-2021TUS012568

PATIENT
  Sex: Male
  Weight: 44 kg

DRUGS (28)
  1. HUMAN IMMUNOGLOBULIN G [Suspect]
     Active Substance: HUMAN IMMUNOGLOBULIN G
     Indication: Selective IgM immunodeficiency
     Dosage: 40 GRAM, Q4WEEKS
     Dates: start: 20200612
  2. HUMAN IMMUNOGLOBULIN G [Suspect]
     Active Substance: HUMAN IMMUNOGLOBULIN G
  3. CEPHALEXIN [Suspect]
     Active Substance: CEPHALEXIN
     Indication: Upper respiratory tract infection
  4. ACETAMINOPHEN [Concomitant]
     Active Substance: ACETAMINOPHEN
  5. DIPHENHYDRAMINE [Concomitant]
     Active Substance: DIPHENHYDRAMINE
  6. SODIUM CHLORIDE [Concomitant]
     Active Substance: SODIUM CHLORIDE
  7. EPINEPHRINE [Concomitant]
     Active Substance: EPINEPHRINE
  8. OXYMETAZOLINE HYDROCHLORIDE [Concomitant]
     Active Substance: OXYMETAZOLINE HYDROCHLORIDE
  9. SOLU-MEDROL [Concomitant]
     Active Substance: METHYLPREDNISOLONE SODIUM SUCCINATE
  10. MONTELUKAST [Concomitant]
     Active Substance: MONTELUKAST
  11. ACETYLCYSTEINE [Concomitant]
     Active Substance: ACETYLCYSTEINE
  12. BACTRIM DS [Concomitant]
     Active Substance: SULFAMETHOXAZOLE\TRIMETHOPRIM
  13. CALCIUM CARBONATE [Concomitant]
     Active Substance: CALCIUM CARBONATE
  14. RITUXAN [Concomitant]
     Active Substance: RITUXIMAB
  15. MUPIROCIN [Concomitant]
     Active Substance: MUPIROCIN
  16. ALBUTEROL SULFATE [Concomitant]
     Active Substance: ALBUTEROL SULFATE
  17. CALCIUM [Concomitant]
     Active Substance: CALCIUM
  18. LACTOBACILLUS ACIDOPHILUS [Concomitant]
     Active Substance: LACTOBACILLUS ACIDOPHILUS
  19. CLARITIN [Concomitant]
     Active Substance: LORATADINE
  20. MONTELUKAST SODIUM [Concomitant]
     Active Substance: MONTELUKAST SODIUM
  21. ALBUTEROL SULFATE [Concomitant]
     Active Substance: ALBUTEROL SULFATE
  22. ADVAIR HFA [Concomitant]
     Active Substance: FLUTICASONE PROPIONATE\SALMETEROL XINAFOATE
  23. EPIPEN [Concomitant]
     Active Substance: EPINEPHRINE
  24. SODIUM CHLORIDE [Concomitant]
     Active Substance: SODIUM CHLORIDE
  25. DIPHENHYDRAMINE HYDROCHLORIDE [Concomitant]
     Active Substance: DIPHENHYDRAMINE HYDROCHLORIDE
  26. PANTOPRAZOLE SODIUM [Concomitant]
     Active Substance: PANTOPRAZOLE SODIUM
  27. CALCITRIOL [Concomitant]
     Active Substance: CALCITRIOL
  28. METHYLPREDNISOLONE [Concomitant]
     Active Substance: METHYLPREDNISOLONE

REACTIONS (14)
  - Testicular torsion [Unknown]
  - Febrile neutropenia [Unknown]
  - Splenomegaly [Unknown]
  - Pneumonia [Unknown]
  - Pyrexia [Unknown]
  - Productive cough [Unknown]
  - Nasopharyngitis [Unknown]
  - Weight decreased [Unknown]
  - Weight fluctuation [Unknown]
  - Upper respiratory tract infection [Unknown]
  - Rash [Unknown]
  - Pruritus [Recovered/Resolved]
  - Headache [Unknown]
  - Nausea [Unknown]
